FAERS Safety Report 15709136 (Version 1)
Quarter: 2018Q4

REPORT INFORMATION
  Report Type: Spontaneous
  Country: US (occurrence: US)
  Receive Date: 20181211
  Receipt Date: 20181211
  Transmission Date: 20190205
  Serious: No
  Sender: FDA-Public Use
  Company Number: US-AUROBINDO-AUR-APU-2018-052830

PATIENT
  Age: 49 Year
  Sex: Female
  Weight: 136 kg

DRUGS (2)
  1. MIRTAZAPINE TABLETS 30 MG [Suspect]
     Active Substance: MIRTAZAPINE
     Indication: SCHIZOPHRENIA
     Dosage: 1 TABLET DAILY AT BED TIME
     Route: 065
     Dates: start: 20180601
  2. MIRTAZAPINE TABLETS 30 MG [Suspect]
     Active Substance: MIRTAZAPINE
     Indication: BIPOLAR DISORDER

REACTIONS (1)
  - Peripheral swelling [Unknown]

NARRATIVE: CASE EVENT DATE: 20180606
